FAERS Safety Report 8924287 (Version 1)
Quarter: 2012Q4

REPORT INFORMATION
  Report Type: 
  Country: LV (occurrence: LV)
  Receive Date: 20121126
  Receipt Date: 20121126
  Transmission Date: 20130627
  Serious: Yes (Other)
  Sender: FDA-Public Use
  Company Number: LV-GLAXOSMITHKLINE-B0841441A

PATIENT
  Age: 62 Year
  Sex: Female
  Weight: 70 kg

DRUGS (3)
  1. TROBALT [Suspect]
     Indication: PARTIAL SEIZURES
     Dosage: 300MG Per day
     Route: 048
     Dates: start: 20120816, end: 20121005
  2. DEPAKINE [Concomitant]
     Indication: PARTIAL SEIZURES
     Dosage: 1500MG Per day
     Route: 048
  3. CLONAZEPAM [Concomitant]
     Indication: PARTIAL SEIZURES
     Dosage: 2MG Per day
     Route: 048

REACTIONS (6)
  - Loss of consciousness [Unknown]
  - Dizziness [Recovered/Resolved]
  - Balance disorder [Recovered/Resolved]
  - Aura [Unknown]
  - Somnolence [Unknown]
  - Disorientation [Unknown]
